FAERS Safety Report 25081830 (Version 2)
Quarter: 2025Q2

REPORT INFORMATION
  Report Type: Report from Study
  Country: GR (occurrence: GR)
  Receive Date: 20250317
  Receipt Date: 20250404
  Transmission Date: 20250716
  Serious: No
  Sender: SANDOZ
  Company Number: GR-SANDOZ-SDZ2025GR015268

PATIENT
  Age: 13 Year
  Sex: Female

DRUGS (2)
  1. OMNITROPE [Suspect]
     Active Substance: SOMATROPIN
     Indication: Growth hormone deficiency
     Route: 058
     Dates: start: 20210412
  2. OMNITROPE [Suspect]
     Active Substance: SOMATROPIN
     Route: 058
     Dates: start: 20211204

REACTIONS (4)
  - Poor quality device used [Unknown]
  - Expired device used [Unknown]
  - Device issue [Unknown]
  - Device mechanical issue [Unknown]
